FAERS Safety Report 8821405 (Version 2)
Quarter: 2013Q1

REPORT INFORMATION
  Report Type: Spontaneous
  Country: JP (occurrence: JP)
  Receive Date: 20121002
  Receipt Date: 20130213
  Transmission Date: 20140127
  Serious: Yes (Life-Threatening, Other)
  Sender: FDA-Public Use
  Company Number: JP-TEVA-361534ISR

PATIENT
  Age: 76 Year
  Sex: Male

DRUGS (3)
  1. ARSENIC TRIOXIDE [Suspect]
     Indication: ACUTE PROMYELOCYTIC LEUKAEMIA
     Route: 042
     Dates: start: 20120516, end: 20120522
  2. VESANOID [Concomitant]
     Dates: start: 20120417, end: 20120507
  3. VESANOID [Concomitant]
     Dates: start: 20120524, end: 20120625

REACTIONS (2)
  - Tubulointerstitial nephritis [Recovering/Resolving]
  - Peritonitis [Recovering/Resolving]
